FAERS Safety Report 4824858-7 (Version None)
Quarter: 2005Q4

REPORT INFORMATION
  Report Type: 
  Country: None (occurrence: None)
  Receive Date: 20051012
  Receipt Date: 20050712
  Transmission Date: 20060501
  Serious: No
  Sender: FDA-Public Use
  Company Number: 2005S1000151

PATIENT
  Age: 50 Year
  Sex: 0
  Weight: 73 kg

DRUGS (11)
  1. CUBICIN [Suspect]
     Indication: OSTEOMYELITIS
     Dosage: 440 MG; Q24H; IV
     Route: 042
     Dates: start: 20050101, end: 20050712
  2. VICODIN [Concomitant]
  3. STAVUDINE [Concomitant]
  4. DIAZEPAM [Concomitant]
  5. ZOLPIDEM TARTRATE [Concomitant]
  6. SILDENAFIL [Concomitant]
  7. CELECOXIB [Concomitant]
  8. DRONABINOL [Concomitant]
  9. TRUVADA [Concomitant]
  10. NELFINAVIR [Concomitant]
  11. LINEZOLID [Concomitant]

REACTIONS (5)
  - HYPERSENSITIVITY [None]
  - PRURITUS [None]
  - RASH [None]
  - SWELLING FACE [None]
  - SWOLLEN TONGUE [None]
